FAERS Safety Report 24675232 (Version 1)
Quarter: 2024Q4

REPORT INFORMATION
  Report Type: Spontaneous
  Country: FR (occurrence: FR)
  Receive Date: 20241128
  Receipt Date: 20241128
  Transmission Date: 20250114
  Serious: Yes (Other)
  Sender: MERCK
  Company Number: None

PATIENT
  Age: 40 Year
  Sex: Female
  Weight: 37 kg

DRUGS (1)
  1. CANCIDAS [Suspect]
     Active Substance: CASPOFUNGIN ACETATE
     Indication: Fungaemia
     Dosage: 50 MILLIGRAM, QD
     Route: 042
     Dates: start: 20241023, end: 20241104

REACTIONS (1)
  - Agranulocytosis [Recovered/Resolved]

NARRATIVE: CASE EVENT DATE: 20241105
